FAERS Safety Report 4694236-2 (Version None)
Quarter: 2005Q2

REPORT INFORMATION
  Report Type: 
  Country: None (occurrence: None)
  Receive Date: 20050617
  Receipt Date: 20050617
  Transmission Date: 20051028
  Serious: Yes (Death)
  Sender: FDA-Public Use
  Company Number: None

PATIENT
  Age: 33 Year
  Sex: Male

DRUGS (1)
  1. ZYPREXA [Suspect]
     Indication: SCHIZOPHRENIA
     Dosage: 20MG    QHS    ORAL
     Route: 048
     Dates: start: 20010129, end: 20030222

REACTIONS (3)
  - DIABETES MELLITUS [None]
  - MALAISE [None]
  - REFUSAL OF TREATMENT BY PATIENT [None]
